FAERS Safety Report 9496683 (Version 3)
Quarter: 2013Q3

REPORT INFORMATION
  Report Type: Report from Study
  Country: AU (occurrence: AU)
  Receive Date: 20130904
  Receipt Date: 20130927
  Transmission Date: 20140515
  Serious: Yes (Death, Hospitalization)
  Sender: FDA-Public Use
  Company Number: PHHO2013AU011147

PATIENT
  Age: 72 Year
  Sex: Male
  Weight: 86.1 kg

DRUGS (13)
  1. BLINDED GP2013 [Suspect]
     Indication: NON-HODGKIN^S LYMPHOMA
     Dosage: CODE NOT BROKEN
     Route: 042
     Dates: start: 20130508
  2. BLINDED MABTHERA [Suspect]
     Indication: NON-HODGKIN^S LYMPHOMA
     Dosage: CODE NOT BROKEN
     Route: 042
     Dates: start: 20130508
  3. BLINDED NO TREATMENT RECEIVED [Suspect]
     Indication: NON-HODGKIN^S LYMPHOMA
     Dosage: CODE NOT BROKEN
     Route: 042
     Dates: start: 20130508
  4. VINCRISTINE [Suspect]
     Dosage: 2 MG, UNK
     Route: 042
     Dates: start: 20130508
  5. PREDNISOLONE SANDOZ [Suspect]
     Dosage: 100 MG, UNK
     Route: 048
     Dates: start: 20130508
  6. CYCLOPHOSPHAMIDE [Suspect]
     Dosage: 1567 MG, UNK
     Route: 042
     Dates: start: 20130508
  7. NEXIUM 1-2-3 [Concomitant]
     Indication: GASTROOESOPHAGEAL REFLUX DISEASE
     Dosage: 40 MG, QD
  8. AVAPRO [Concomitant]
     Indication: HYPERTENSION
     Dosage: 150 MG, QD
  9. XALATAN [Concomitant]
     Indication: GLAUCOMA
     Dosage: UNK
  10. FOSAMAX [Concomitant]
     Indication: OSTEOPENIA
     Dosage: 70 MG, QW
  11. ASPIRIN [Concomitant]
     Indication: HYPERTENSION
     Dosage: 100 MG, QD
  12. PARACETAMOL [Concomitant]
     Indication: PROPHYLAXIS
     Dosage: 1000 3 WEEKLY WITH TREATMENT
     Dates: start: 20130508
  13. ONDANSETRON [Concomitant]
     Dosage: 8 MG, UNK
     Dates: start: 20130508

REACTIONS (1)
  - Sepsis [Fatal]
